FAERS Safety Report 14709271 (Version 2)
Quarter: 2018Q3

REPORT INFORMATION
  Report Type: Spontaneous
  Country: US (occurrence: US)
  Receive Date: 20180403
  Receipt Date: 20180910
  Transmission Date: 20181010
  Serious: Yes (Other)
  Sender: FDA-Public Use
  Company Number: US-SA-2018SA095468

PATIENT
  Age: 54 Year
  Sex: Female

DRUGS (1)
  1. AUBAGIO [Suspect]
     Active Substance: TERIFLUNOMIDE
     Indication: TORTICOLLIS
     Dosage: 14 MG,QD
     Route: 048
     Dates: start: 20180125

REACTIONS (3)
  - Respiratory distress [Unknown]
  - Product use in unapproved indication [Unknown]
  - Asthenia [Unknown]
